FAERS Safety Report 10170598 (Version 1)
Quarter: 2014Q2

REPORT INFORMATION
  Report Type: Spontaneous
  Country: US (occurrence: US)
  Receive Date: 20140513
  Receipt Date: 20140513
  Transmission Date: 20141212
  Serious: Yes (Hospitalization)
  Sender: FDA-Public Use
  Company Number: US-JNJFOC-20140502399

PATIENT
  Age: 14 Year
  Sex: Female
  Weight: 81.1 kg

DRUGS (15)
  1. BENADRYL [Suspect]
     Indication: PRODUCT USED FOR UNKNOWN INDICATION
     Route: 065
  2. VELCADE [Suspect]
     Indication: ACUTE MYELOID LEUKAEMIA
     Dosage: OVER 3-5 SECONDS ON DAYS 1, 4 AND 8
     Route: 042
     Dates: start: 20140111, end: 20140214
  3. CYTARABINE [Suspect]
     Indication: ACUTE MYELOID LEUKAEMIA
     Dosage: REGIMEN 1: 20-70 MG, ON DAY 1 CNS POSITIVE PATIENTS: TWICE WEEKLY TO A MAXIMUM OF 6
     Route: 037
     Dates: start: 20140111
  4. CYTARABINE [Suspect]
     Indication: ACUTE MYELOID LEUKAEMIA
     Dosage: REGIMEN 2: OVER 15-30 MINUTES ON DAYS 1 TO 8
     Route: 042
  5. CYTARABINE [Suspect]
     Indication: ACUTE MYELOID LEUKAEMIA
     Dosage: REGIMEN 3: OVER 1 TO 3 HOURS ON DAYS 1 TO 5
     Route: 042
  6. CYTARABINE [Suspect]
     Indication: ACUTE MYELOID LEUKAEMIA
     Dosage: REGIMEN 4: OVER 1 TO 3 HOURS ON DAYS 1 TO 4
     Route: 042
  7. ETOPOSIDE [Suspect]
     Indication: ACUTE MYELOID LEUKAEMIA
     Dosage: REGIMEN 1: OVER 60-120 MINUTES ON DAYS 1 TO 5
     Route: 042
     Dates: start: 20140111
  8. ETOPOSIDE [Suspect]
     Indication: ACUTE MYELOID LEUKAEMIA
     Dosage: REGIMEN 2: OVER 60 TO 120 MINUTES ON DAYS 1 TO 5
     Route: 042
  9. DAUNORUBICIN HYDROCHLORIDE [Suspect]
     Indication: ACUTE MYELOID LEUKAEMIA
     Dosage: OVER 1 TO 15 MINUTES ON DAYS 1, 3 AND 5
     Route: 042
     Dates: start: 20140111
  10. AMITRIPTYLINE [Suspect]
     Indication: PRODUCT USED FOR UNKNOWN INDICATION
     Route: 065
  11. BACTRIM [Suspect]
     Indication: PRODUCT USED FOR UNKNOWN INDICATION
     Route: 065
  12. VORICONAZOLE [Suspect]
     Indication: PRODUCT USED FOR UNKNOWN INDICATION
     Route: 065
  13. MEGACE [Suspect]
     Indication: PRODUCT USED FOR UNKNOWN INDICATION
     Route: 065
  14. ELAVIL [Suspect]
     Indication: PRODUCT USED FOR UNKNOWN INDICATION
     Route: 065
  15. CYMBALTA [Suspect]
     Indication: PRODUCT USED FOR UNKNOWN INDICATION
     Route: 065

REACTIONS (2)
  - Electrocardiogram QT prolonged [Recovering/Resolving]
  - Left ventricular dysfunction [Recovering/Resolving]
